FAERS Safety Report 8921468 (Version 5)
Quarter: 2014Q1

REPORT INFORMATION
  Report Type: Report from Study
  Country: FR (occurrence: FR)
  Receive Date: 20121122
  Receipt Date: 20140320
  Transmission Date: 20141002
  Serious: Yes (Hospitalization)
  Sender: FDA-Public Use
  Company Number: FR-BIOGENIDEC-2012BI053466

PATIENT
  Age: 52 Year
  Sex: Female

DRUGS (7)
  1. TYSABRI [Suspect]
     Indication: MULTIPLE SCLEROSIS
     Route: 042
     Dates: start: 20090219, end: 20121009
  2. ANTIDEPRESSANTS [Concomitant]
  3. ANTI-MUSCARINIC AGENTS [BLADDER SPECIFIC] [Concomitant]
  4. LEVOTHROXINE WITH SODIUM [Concomitant]
  5. ANTIEPILEPTIC MEDICATION (NOS) [Concomitant]
  6. ANTIDIURETIC MEDICATION (NOS) [Concomitant]
  7. OPIATED PAIN KILLER [Concomitant]

REACTIONS (2)
  - Progressive multifocal leukoencephalopathy [Not Recovered/Not Resolved]
  - Immune reconstitution inflammatory syndrome [Unknown]
